FAERS Safety Report 6378763-8 (Version None)
Quarter: 2009Q3

REPORT INFORMATION
  Report Type: 
  Country: None (occurrence: None)
  Receive Date: 20090928
  Receipt Date: 20090915
  Transmission Date: 20100115
  Serious: Yes (Other)
  Sender: FDA-Public Use
  Company Number: US-BRISTOL-MYERS SQUIBB COMPANY-14780407

PATIENT
  Age: 5 Decade
  Sex: Female

DRUGS (2)
  1. ABILIFY [Suspect]
     Indication: MAJOR DEPRESSION
     Dosage: INITIAL DOSE:5MG QD
  2. GABAPENTIN [Concomitant]

REACTIONS (2)
  - DEMENTIA [None]
  - TARDIVE DYSKINESIA [None]
